FAERS Safety Report 11310543 (Version 2)
Quarter: 2015Q3

REPORT INFORMATION
  Report Type: Report from Study
  Country: US (occurrence: US)
  Receive Date: 20150724
  Receipt Date: 20150904
  Transmission Date: 20151125
  Serious: No
  Sender: FDA-Public Use
  Company Number: PHEH2015US014068

PATIENT
  Age: 12 Year
  Sex: Male

DRUGS (1)
  1. AFINITOR [Suspect]
     Active Substance: EVEROLIMUS
     Indication: BRAIN NEOPLASM BENIGN
     Dosage: 5 MG, QD
     Route: 048
     Dates: start: 20150621

REACTIONS (3)
  - Gingival swelling [Not Recovered/Not Resolved]
  - Agitation [Not Recovered/Not Resolved]
  - Stomatitis [Not Recovered/Not Resolved]

NARRATIVE: CASE EVENT DATE: 20150720
